FAERS Safety Report 22112983 (Version 1)
Quarter: 2023Q1

REPORT INFORMATION
  Report Type: Spontaneous
  Country: GB (occurrence: GB)
  Receive Date: 20230320
  Receipt Date: 20230320
  Transmission Date: 20230418
  Serious: Yes (Other)
  Sender: FDA-Public Use
  Company Number: GB-MHRA-ADR 27751372

PATIENT
  Sex: Female

DRUGS (1)
  1. TRANEXAMIC ACID [Suspect]
     Active Substance: TRANEXAMIC ACID
     Indication: Abnormal uterine bleeding
     Dosage: UNK
     Route: 065
     Dates: start: 20200904

REACTIONS (2)
  - Cerebral venous sinus thrombosis [Unknown]
  - Headache [Unknown]
